FAERS Safety Report 15588603 (Version 1)
Quarter: 2018Q4

REPORT INFORMATION
  Report Type: Report from Study
  Country: None (occurrence: US)
  Receive Date: 20181106
  Receipt Date: 20181106
  Transmission Date: 20190205
  Serious: Yes (Hospitalization, Other)
  Sender: FDA-Public Use
  Company Number: US-ABBVIE-18K-163-2536648-00

PATIENT
  Sex: Female

DRUGS (1)
  1. HUMIRA [Suspect]
     Active Substance: ADALIMUMAB
     Indication: RHEUMATOID ARTHRITIS
     Route: 058
     Dates: start: 2012, end: 2014

REACTIONS (8)
  - Brain neoplasm [Recovered/Resolved]
  - Speech disorder [Recovered/Resolved]
  - Arthralgia [Recovering/Resolving]
  - Pneumonia [Recovered/Resolved]
  - Seizure [Recovered/Resolved]
  - Foot deformity [Recovering/Resolving]
  - Pain [Recovering/Resolving]
  - Breast cancer female [Recovered/Resolved]

NARRATIVE: CASE EVENT DATE: 2014
